FAERS Safety Report 19051934 (Version 3)
Quarter: 2021Q4

REPORT INFORMATION
  Report Type: Spontaneous
  Country: IL (occurrence: IL)
  Receive Date: 20210324
  Receipt Date: 20211014
  Transmission Date: 20220303
  Serious: Yes (Other)
  Sender: FDA-Public Use
  Company Number: IL-NOVOPROD-797244

PATIENT
  Age: 65 Year
  Sex: Female
  Weight: 78 kg

DRUGS (4)
  1. SAXENDA [Suspect]
     Active Substance: LIRAGLUTIDE
     Indication: Overweight
     Dosage: 3 MG, QD
     Route: 058
     Dates: start: 2019, end: 202102
  2. ATENOLOL [Concomitant]
     Active Substance: ATENOLOL
     Dosage: UNK
  3. RAMIPRIL [Concomitant]
     Active Substance: RAMIPRIL
     Dosage: UNK
  4. METFORMIN HYDROCHLORIDE [Concomitant]
     Active Substance: METFORMIN HYDROCHLORIDE
     Dosage: UNK

REACTIONS (1)
  - Breast cancer recurrent [Recovered/Resolved]

NARRATIVE: CASE EVENT DATE: 20210101
